FAERS Safety Report 25618929 (Version 2)
Quarter: 2025Q3

REPORT INFORMATION
  Report Type: Spontaneous
  Country: JP (occurrence: JP)
  Receive Date: 20250729
  Receipt Date: 20250925
  Transmission Date: 20251021
  Serious: Yes (Life-Threatening, Other)
  Sender: AMGEN
  Company Number: JP-AMGEN-JPNSP2025148130

PATIENT

DRUGS (4)
  1. IMDELLTRA [Suspect]
     Active Substance: TARLATAMAB-DLLE
     Indication: Small cell lung cancer
     Route: 040
     Dates: start: 20250602
  2. IMDELLTRA [Suspect]
     Active Substance: TARLATAMAB-DLLE
     Route: 040
     Dates: start: 20250609
  3. IMDELLTRA [Suspect]
     Active Substance: TARLATAMAB-DLLE
     Route: 040
     Dates: start: 20250630
  4. IMDELLTRA [Suspect]
     Active Substance: TARLATAMAB-DLLE
     Route: 040
     Dates: start: 20250714

REACTIONS (4)
  - Neutropenia [Recovered/Resolved]
  - Renal impairment [Recovered/Resolved]
  - Thrombocytopenia [Recovered/Resolved]
  - Hepatic function abnormal [Recovered/Resolved]

NARRATIVE: CASE EVENT DATE: 20250630
